FAERS Safety Report 24912021 (Version 1)
Quarter: 2025Q1

REPORT INFORMATION
  Report Type: Spontaneous
  Country: US (occurrence: US)
  Receive Date: 20250131
  Receipt Date: 20250131
  Transmission Date: 20250408
  Serious: No
  Sender: SANOFI AVENTIS
  Company Number: US-SA-2025SA030254

PATIENT
  Sex: Female
  Weight: 56.689 kg

DRUGS (14)
  1. DUPIXENT [Suspect]
     Active Substance: DUPILUMAB
     Indication: Psoriasis
     Dosage: 300 MG, QOW
     Route: 058
  2. VRAYLAR [Concomitant]
     Active Substance: CARIPRAZINE
  3. EZETIMIBE [Concomitant]
     Active Substance: EZETIMIBE
  4. NP THYROID [Concomitant]
     Active Substance: LEVOTHYROXINE\LIOTHYRONINE
  5. NORTRIPTYLINE [Concomitant]
     Active Substance: NORTRIPTYLINE
  6. PROGESTERONE [Concomitant]
     Active Substance: PROGESTERONE
  7. VITAMIN D2 [Concomitant]
     Active Substance: ERGOCALCIFEROL
  8. EMGALITY [Concomitant]
     Active Substance: GALCANEZUMAB-GNLM
  9. MOUNJARO [Concomitant]
     Active Substance: TIRZEPATIDE
  10. TRULANCE [Concomitant]
     Active Substance: PLECANATIDE
  11. LINZESS [Concomitant]
     Active Substance: LINACLOTIDE
  12. CLONAZEPAM [Concomitant]
     Active Substance: CLONAZEPAM
  13. TEMAZEPAM [Concomitant]
     Active Substance: TEMAZEPAM
  14. LUBIPROSTONE [Concomitant]
     Active Substance: LUBIPROSTONE

REACTIONS (1)
  - Product use in unapproved indication [Unknown]
